FAERS Safety Report 9312629 (Version 1)
Quarter: 2013Q2

REPORT INFORMATION
  Report Type: Spontaneous
  Country: DE (occurrence: DE)
  Receive Date: 20130528
  Receipt Date: 20130528
  Transmission Date: 20140414
  Serious: Yes (Congenital Anomaly, Other)
  Sender: FDA-Public Use
  Company Number: DE-GLAXOSMITHKLINE-D0079920A

PATIENT
  Age: 0 Day
  Sex: Male
  Weight: 4.9 kg

DRUGS (8)
  1. LAMOTRIGINE [Suspect]
     Indication: EPILEPSY
     Dosage: 100MG THREE TIMES PER DAY
     Route: 064
     Dates: start: 20110806, end: 20120511
  2. KEPPRA [Suspect]
     Indication: EPILEPSY
     Dosage: 1000MG TWICE PER DAY
     Route: 064
     Dates: start: 20110806, end: 20120511
  3. SEROQUEL [Suspect]
     Indication: BORDERLINE PERSONALITY DISORDER
     Dosage: 25MG TWICE PER DAY
     Route: 064
     Dates: start: 20110806, end: 20120511
  4. RIVOTRIL [Suspect]
     Indication: BORDERLINE PERSONALITY DISORDER
     Dosage: .5MG PER DAY
     Route: 064
     Dates: start: 20110806, end: 20120315
  5. EUTHYROX [Concomitant]
     Indication: HYPOTHYROIDISM
     Dosage: 150MCG PER DAY
     Route: 064
     Dates: start: 20110806, end: 20120511
  6. STANGYL [Concomitant]
     Indication: BORDERLINE PERSONALITY DISORDER
     Dosage: 100MG PER DAY
     Route: 064
     Dates: start: 20110806, end: 20111215
  7. HEROIN [Concomitant]
     Indication: DRUG ABUSE
     Route: 064
  8. CANNABIS [Concomitant]
     Route: 064

REACTIONS (8)
  - Neonatal respiratory distress syndrome [Recovered/Resolved]
  - Convulsion [Recovered/Resolved]
  - Dysmorphism [Unknown]
  - Withdrawal syndrome [Recovered/Resolved]
  - Dyskinesia [Unknown]
  - Hypertonia [Unknown]
  - Feeling jittery [Unknown]
  - Foetal exposure during pregnancy [Unknown]
